FAERS Safety Report 5283003-7 (Version None)
Quarter: 2007Q1

REPORT INFORMATION
  Report Type: 
  Country: None (occurrence: None)
  Receive Date: 20070329
  Receipt Date: 20070329
  Transmission Date: 20070707
  Serious: Yes (Hospitalization)
  Sender: FDA-Public Use
  Company Number: None

PATIENT
  Age: 67 Year
  Sex: Female
  Weight: 59 kg

DRUGS (5)
  1. PEG-INTRON 80 MICROGRAMS, SCHERING PLOUGH [Suspect]
     Indication: HEREDITARY HAEMORRHAGIC TELANGIECTASIA
     Dosage: 80 MCG ONCE WEEKLY SQ
  2. DILANTIN [Concomitant]
  3. PHENOBARBITAL TAB [Concomitant]
  4. FERROUS SULFATE [Concomitant]
  5. ASCORBIC ACID [Concomitant]

REACTIONS (1)
  - HOSPITALISATION [None]
